FAERS Safety Report 18186021 (Version 4)
Quarter: 2020Q3

REPORT INFORMATION
  Report Type: Spontaneous
  Country: GB (occurrence: GB)
  Receive Date: 20200824
  Receipt Date: 20200903
  Transmission Date: 20201103
  Serious: Yes (Death, Life-Threatening, Hospitalization, Other)
  Sender: FDA-Public Use
  Company Number: GB-PFIZER INC-2020320476

PATIENT
  Age: 53 Year
  Sex: Male

DRUGS (4)
  1. TAMSULOSIN [Concomitant]
     Active Substance: TAMSULOSIN
     Indication: BENIGN PROSTATIC HYPERPLASIA
  2. SOMATROPIN. [Suspect]
     Active Substance: SOMATROPIN
     Indication: MUSCLE BUILDING THERAPY
     Dosage: 2 IU, DAILY (6?WEEKS ON AND 4?WEEKS OFF REGIME FOR OVER 20 YEARS)
  3. LANSOPRAZOLE. [Concomitant]
     Active Substance: LANSOPRAZOLE
     Dosage: UNK
  4. TESTOSTERONE. [Suspect]
     Active Substance: TESTOSTERONE
     Indication: MUSCLE BUILDING THERAPY
     Dosage: 350 MG, DAILY (6?WEEKS ON AND 4?WEEKS OFF REGIME FOR OVER 20 YEARS)

REACTIONS (14)
  - Myocardial infarction [Fatal]
  - Renal impairment [Recovering/Resolving]
  - Acute kidney injury [Recovering/Resolving]
  - Aortic stenosis [Unknown]
  - Chronic kidney disease [Recovering/Resolving]
  - Myositis [Recovering/Resolving]
  - Constipation [Unknown]
  - Left ventricular hypertrophy [Unknown]
  - Left ventricular failure [Unknown]
  - Self-medication [Fatal]
  - Focal segmental glomerulosclerosis [Recovering/Resolving]
  - Coronary artery disease [Unknown]
  - Hypercalcaemia [Recovering/Resolving]
  - Rhabdomyolysis [Unknown]
